FAERS Safety Report 13735543 (Version 1)
Quarter: 2017Q3

REPORT INFORMATION
  Report Type: Spontaneous
  Country: US (occurrence: US)
  Receive Date: 20170709
  Receipt Date: 20170709
  Transmission Date: 20171127
  Serious: Yes (Other)
  Sender: FDA-Public Use
  Company Number: None

PATIENT
  Age: 36 Year
  Sex: Female
  Weight: 61.2 kg

DRUGS (1)
  1. MIRENA [Suspect]
     Active Substance: LEVONORGESTREL
     Indication: CONTRACEPTION
     Dosage: ?          QUANTITY:1 IUD;OTHER FREQUENCY:24/7;OTHER ROUTE:INTO THE UTERUS?
     Route: 015
     Dates: start: 20140310, end: 20160606

REACTIONS (2)
  - Uterine scar [None]
  - Complication associated with device [None]

NARRATIVE: CASE EVENT DATE: 20170610
